FAERS Safety Report 14932896 (Version 3)
Quarter: 2018Q2

REPORT INFORMATION
  Report Type: Spontaneous
  Country: US (occurrence: US)
  Receive Date: 20180524
  Receipt Date: 20180621
  Transmission Date: 20180711
  Serious: No
  Sender: FDA-Public Use
  Company Number: PHEH2018US019150

PATIENT
  Sex: Male

DRUGS (1)
  1. EXTAVIA [Suspect]
     Active Substance: INTERFERON BETA-1B
     Indication: MULTIPLE SCLEROSIS
     Dosage: 0.25 MG, Q48H
     Route: 058
     Dates: start: 20140210

REACTIONS (4)
  - Underdose [Unknown]
  - Product leakage [Unknown]
  - Depression [Recovering/Resolving]
  - Device issue [Unknown]
